FAERS Safety Report 14435827 (Version 2)
Quarter: 2018Q1

REPORT INFORMATION
  Report Type: Spontaneous
  Country: IT (occurrence: IT)
  Receive Date: 20180125
  Receipt Date: 20180131
  Transmission Date: 20180509
  Serious: Yes (Hospitalization, Other)
  Sender: FDA-Public Use
  Company Number: IT-009507513-1801ITA008362

PATIENT
  Age: 76 Year
  Sex: Male

DRUGS (5)
  1. JANUMET [Suspect]
     Active Substance: METFORMIN HYDROCHLORIDE\SITAGLIPTIN PHOSPHATE
     Indication: DIABETES MELLITUS
     Dosage: 1 DF, QD
     Route: 048
     Dates: start: 20170101, end: 20180110
  2. BLOPRESS [Concomitant]
     Active Substance: CANDESARTAN CILEXETIL
     Dosage: 32 MG, UNK
  3. ZUGLIMET [Suspect]
     Active Substance: METFORMIN HYDROCHLORIDE
     Indication: DIABETES MELLITUS
     Dosage: 1 DF, QD
     Route: 048
     Dates: start: 20170101, end: 20180110
  4. FULCROSUPRA [Concomitant]
     Active Substance: FENOFIBRATE
  5. PRADIF [Concomitant]
     Active Substance: TAMSULOSIN HYDROCHLORIDE

REACTIONS (4)
  - Agitation [Unknown]
  - Malaise [Unknown]
  - Diabetes mellitus inadequate control [Unknown]
  - Confusional state [Unknown]

NARRATIVE: CASE EVENT DATE: 20180110
